FAERS Safety Report 6814136-9 (Version None)
Quarter: 2010Q3

REPORT INFORMATION
  Report Type: 
  Country: None (occurrence: None)
  Receive Date: 20100702
  Receipt Date: 20100310
  Transmission Date: 20110219
  Serious: No
  Sender: FDA-Public Use
  Company Number: A0849515A

PATIENT
  Age: 56 Year
  Sex: Male

DRUGS (10)
  1. ADVAIR DISKUS 100/50 [Suspect]
     Indication: ASTHMA
     Dosage: 2PUFF PER DAY
     Route: 055
     Dates: start: 20080901
  2. ADVAIR DISKUS 100/50 [Suspect]
     Route: 055
  3. PREVACID [Concomitant]
  4. DIOVAN [Concomitant]
  5. HYDROCHLOROTHIAZIDE [Concomitant]
  6. PROAIR HFA [Concomitant]
  7. ZYRTEC [Concomitant]
  8. VITAMIN D3 [Concomitant]
  9. FISH OIL [Concomitant]
  10. VENTOLIN [Concomitant]

REACTIONS (4)
  - COUGH [None]
  - DRUG INEFFECTIVE [None]
  - DYSPNOEA [None]
  - TREATMENT NONCOMPLIANCE [None]
